FAERS Safety Report 5426022-X (Version None)
Quarter: 2007Q3

REPORT INFORMATION
  Report Type: 
  Country: None (occurrence: None)
  Receive Date: 20070824
  Receipt Date: 20070824
  Transmission Date: 20080115
  Serious: Yes (Other)
  Sender: FDA-Public Use
  Company Number: None

PATIENT
  Sex: Female
  Weight: 107.7 kg

DRUGS (2)
  1. CEFTRIAXONE [Suspect]
     Indication: CHRONIC OBSTRUCTIVE PULMONARY DISEASE
     Dosage: 1 G Q 24 HOURS IV
     Route: 042
     Dates: start: 20070720, end: 20070724
  2. CEFTRIAXONE [Suspect]
     Indication: INFECTION
     Dosage: 1 G Q 24 HOURS IV
     Route: 042
     Dates: start: 20070720, end: 20070724

REACTIONS (2)
  - INCISION SITE COMPLICATION [None]
  - RASH PRURITIC [None]
